FAERS Safety Report 9239079 (Version 1)
Quarter: 2013Q2

REPORT INFORMATION
  Report Type: Spontaneous
  Country: US (occurrence: US)
  Receive Date: 20130418
  Receipt Date: 20130418
  Transmission Date: 20140414
  Serious: No
  Sender: FDA-Public Use
  Company Number: US-TEVA-397854USA

PATIENT
  Sex: Female

DRUGS (3)
  1. PLAN B ONE-STEP [Suspect]
     Indication: POST COITAL CONTRACEPTION
     Dosage: 1.5 MILLIGRAM DAILY;
     Route: 048
     Dates: start: 20130331, end: 20130331
  2. KLONOPIN [Concomitant]
     Indication: ANXIETY
     Dosage: QOD
     Route: 048
  3. WELLBUTRIN [Concomitant]
     Indication: DEPRESSION
     Dosage: 300 MILLIGRAM DAILY;
     Route: 048

REACTIONS (2)
  - Anxiety [Not Recovered/Not Resolved]
  - Abdominal pain lower [Not Recovered/Not Resolved]
